FAERS Safety Report 25427963 (Version 1)
Quarter: 2025Q2

REPORT INFORMATION
  Report Type: Spontaneous
  Country: US (occurrence: US)
  Receive Date: 20250612
  Receipt Date: 20250612
  Transmission Date: 20250717
  Serious: No
  Sender: PHARMACOSMOS A/S
  Company Number: US-NEBO-695798

PATIENT
  Sex: Male

DRUGS (1)
  1. MONOFERRIC [Suspect]
     Active Substance: FERRIC DERISOMALTOSE
     Indication: Product used for unknown indication

REACTIONS (5)
  - Procedural anxiety [Unknown]
  - Chest discomfort [Unknown]
  - Dyspnoea [Unknown]
  - Frustration tolerance decreased [Unknown]
  - Back pain [Unknown]
